FAERS Safety Report 8790238 (Version 1)
Quarter: 2012Q4

REPORT INFORMATION
  Report Type: 
  Country: US (occurrence: US)
  Receive Date: 20120917
  Receipt Date: 20120917
  Transmission Date: 20130627
  Serious: Yes (Death)
  Sender: FDA-Public Use
  Company Number: US-JNJFOC-20120905317

PATIENT
  Age: 35 Year
  Sex: Male
  Weight: 86.18 kg

DRUGS (3)
  1. SANDOZ FENTANYL TRANSDERMAL SYSTEM [Suspect]
     Indication: PRODUCT USED FOR UNKNOWN INDICATION
     Dosage: NDC 0781-7242-55
     Route: 062
  2. FENTANYL [Suspect]
     Indication: PRODUCT USED FOR UNKNOWN INDICATION
     Route: 048
  3. TESTOSTERONE [Concomitant]
     Route: 065

REACTIONS (5)
  - Overdose [Fatal]
  - Intentional drug misuse [Unknown]
  - Drug abuse [Unknown]
  - Expired drug administered [Unknown]
  - Product quality issue [None]
